FAERS Safety Report 6456501-8 (Version None)
Quarter: 2009Q4

REPORT INFORMATION
  Report Type: 
  Country: None (occurrence: None)
  Receive Date: 20091125
  Receipt Date: 20091120
  Transmission Date: 20100525
  Serious: Yes (Hospitalization)
  Sender: FDA-Public Use
  Company Number: AR-BRISTOL-MYERS SQUIBB COMPANY-12949228

PATIENT
  Age: 78 Year
  Sex: Male

DRUGS (3)
  1. IRBESARTAN [Suspect]
     Indication: HYPERTENSION
     Dosage: STOPPED; RESTARTED ON 29-APR-2005
     Dates: start: 20050405
  2. CLOPIDOGREL BISULFATE [Suspect]
     Indication: PROPHYLAXIS
     Dosage: INTERRUPTED ON 10-APR-2005.
     Dates: start: 20050405, end: 20050410
  3. ASPIRIN [Suspect]
     Indication: PROPHYLAXIS
     Dosage: INTERRUPTED ON 10-APR-2005.
     Dates: start: 20050405, end: 20050410

REACTIONS (1)
  - DUODENAL ULCER HAEMORRHAGE [None]
